FAERS Safety Report 11948092 (Version 1)
Quarter: 2016Q1

REPORT INFORMATION
  Report Type: Spontaneous
  Country: US (occurrence: US)
  Receive Date: 20160125
  Receipt Date: 20160125
  Transmission Date: 20160526
  Serious: No
  Sender: FDA-Public Use
  Company Number: US-PERRIGO-15US010149

PATIENT
  Sex: Female

DRUGS (1)
  1. NYSTATIN RX 100000 U/G 1P6 [Suspect]
     Active Substance: NYSTATIN
     Indication: FUNGAL INFECTION
     Dosage: UNK, UNK
     Route: 061
     Dates: start: 2015

REACTIONS (1)
  - Drug ineffective [Unknown]

NARRATIVE: CASE EVENT DATE: 201509
